FAERS Safety Report 5041353-3 (Version None)
Quarter: 2006Q2

REPORT INFORMATION
  Report Type: 
  Country: None (occurrence: None)
  Receive Date: 20060626
  Receipt Date: 20060612
  Transmission Date: 20061013
  Serious: Yes (Hospitalization)
  Sender: FDA-Public Use
  Company Number: US-2006-007896

PATIENT
  Age: 73 Year
  Sex: Female
  Weight: 65 kg

DRUGS (12)
  1. FLUDARA [Suspect]
     Indication: CHRONIC LYMPHOCYTIC LEUKAEMIA
     Dosage: 33 MG, INTRAVENOUS
     Route: 042
     Dates: start: 20051212, end: 20060213
  2. RITUXAN [Suspect]
     Indication: CHRONIC LYMPHOCYTIC LEUKAEMIA
     Dosage: 615 MG, INTRAVENOUS
     Route: 042
     Dates: start: 20051212, end: 20060213
  3. CYTOXAN [Suspect]
     Indication: CHRONIC LYMPHOCYTIC LEUKAEMIA
     Dosage: 984 MG
     Dates: start: 20051212, end: 20060213
  4. DIFLUCAN [Concomitant]
  5. ACYCLOVIR [Concomitant]
  6. DIGOXIN [Concomitant]
  7. GLUCOPHAGE [Concomitant]
  8. ALLOPURINOL [Concomitant]
  9. NORVASC [Concomitant]
  10. DIOVAN [Concomitant]
  11. TOPROL-XL [Concomitant]
  12. ACCURETIC (QUINAPRIL HYDROCHLORIDE) [Concomitant]

REACTIONS (7)
  - ATRIAL FIBRILLATION [None]
  - BLOOD PRESSURE DECREASED [None]
  - BUNDLE BRANCH BLOCK RIGHT [None]
  - HYPOKALAEMIA [None]
  - HYPOMAGNESAEMIA [None]
  - SEPSIS [None]
  - SINUSITIS [None]
